FAERS Safety Report 9018002 (Version 1)
Quarter: 2013Q1

REPORT INFORMATION
  Report Type: Spontaneous
  Country: US (occurrence: None)
  Receive Date: 20130110
  Receipt Date: 20130110
  Transmission Date: 20140127
  Serious: No
  Sender: FDA-Public Use
  Company Number: None

PATIENT
  Sex: Female

DRUGS (1)
  1. MAKENA [Suspect]
     Dosage: 1ML Q WEEK IM
     Route: 030

REACTIONS (3)
  - Headache [None]
  - Affect lability [None]
  - Epistaxis [None]
